FAERS Safety Report 4760000-9 (Version None)
Quarter: 2005Q3

REPORT INFORMATION
  Report Type: 
  Country: None (occurrence: None)
  Receive Date: 20050831
  Receipt Date: 20050831
  Transmission Date: 20060218
  Serious: Yes (Hospitalization, Other)
  Sender: FDA-Public Use
  Company Number: None

PATIENT
  Age: 50 Year
  Sex: Female

DRUGS (1)
  1. CLORAZEPATE 3.75M [Suspect]
     Indication: ANXIETY
     Dosage: 3.75MG
     Dates: start: 20050820, end: 20050827

REACTIONS (5)
  - DEHYDRATION [None]
  - DRUG EFFECT DECREASED [None]
  - HEADACHE [None]
  - MALAISE [None]
  - PHARMACEUTICAL PRODUCT COMPLAINT [None]
